FAERS Safety Report 8608934-9 (Version None)
Quarter: 2012Q3

REPORT INFORMATION
  Report Type: 
  Country: None (occurrence: None)
  Receive Date: 20120821
  Receipt Date: 19960226
  Transmission Date: 20120928
  Serious: Yes (Hospitalization)
  Sender: FDA-Public Use
  Company Number: US-ROCHE-1101433

PATIENT
  Sex: Female

DRUGS (3)
  1. PREMARIN [Concomitant]
  2. ELAVIL [Concomitant]
  3. ACTIVASE [Suspect]
     Indication: MYOCARDIAL INFARCTION

REACTIONS (1)
  - GROIN PAIN [None]
